FAERS Safety Report 5648237-8 (Version None)
Quarter: 2008Q1

REPORT INFORMATION
  Report Type: 
  Country: None (occurrence: None)
  Receive Date: 20080229
  Receipt Date: 20080221
  Transmission Date: 20080703
  Serious: Yes (Hospitalization)
  Sender: FDA-Public Use
  Company Number: GXKR2008GB01867

PATIENT
  Sex: Male

DRUGS (7)
  1. TRIMETHOPRIM [Suspect]
     Indication: URINARY TRACT INFECTION
     Dosage: 200 MG, BID, ORAL
     Route: 048
     Dates: start: 20080205, end: 20080206
  2. BECLOMETASONE (VECLOMETASONE) [Concomitant]
  3. BENDROFLUAZIDE (BENDROFLUAZIDE) [Concomitant]
  4. CO-DYRDRAMOL (DIHDROCODEINE BITARTRATE, PARACETAMOL) [Concomitant]
  5. MOVICOL (MACROGOL, POTASSIUM CHLORIDE, SODIUM BICARBONATE, SODIUM CHLO [Concomitant]
  6. TERBUTALINE SULFATE [Concomitant]
  7. TRAMADOL HCL [Concomitant]

REACTIONS (5)
  - BLOOD DISORDER [None]
  - HAEMOGLOBIN INCREASED [None]
  - HAEMOGLOBIN S DECREASED [None]
  - MOUTH ULCERATION [None]
  - RENAL IMPAIRMENT [None]
